FAERS Safety Report 15181906 (Version 2)
Quarter: 2018Q4

REPORT INFORMATION
  Report Type: Spontaneous
  Country: US (occurrence: US)
  Receive Date: 20180723
  Receipt Date: 20181016
  Transmission Date: 20190204
  Serious: Yes (Other)
  Sender: FDA-Public Use
  Company Number: US-GLAXOSMITHKLINE-US2018GSK128334

PATIENT
  Sex: Female

DRUGS (4)
  1. ADVAIR HFA [Suspect]
     Active Substance: FLUTICASONE PROPIONATE\SALMETEROL XINAFOATE
     Indication: ASTHMA
     Dosage: UNK
     Dates: start: 2007
  2. METFORMIN [Concomitant]
     Active Substance: METFORMIN HYDROCHLORIDE
  3. ADVAIR HFA [Suspect]
     Active Substance: FLUTICASONE PROPIONATE\SALMETEROL XINAFOATE
     Dosage: UNK
  4. TRULICITY [Concomitant]
     Active Substance: DULAGLUTIDE

REACTIONS (6)
  - Hypertension [Unknown]
  - Depression [Unknown]
  - Stress [Unknown]
  - Bone density abnormal [Unknown]
  - Diabetes mellitus [Unknown]
  - Blood cholesterol abnormal [Unknown]

NARRATIVE: CASE EVENT DATE: 2012
